FAERS Safety Report 9379768 (Version 1)
Quarter: 2013Q3

REPORT INFORMATION
  Report Type: Spontaneous
  Country: US (occurrence: None)
  Receive Date: 20130701
  Receipt Date: 20130701
  Transmission Date: 20140515
  Serious: Yes (Death)
  Sender: FDA-Public Use
  Company Number: None

PATIENT
  Age: 62 Year
  Sex: Female
  Weight: 44.6 kg

DRUGS (5)
  1. OXALIPLATIN (ELOXATIN) [Suspect]
  2. PACLITAXEL (TAXOL) [Suspect]
  3. 5-FLUOROURACIL (5-FU) [Suspect]
  4. CARBOPLATIN [Suspect]
  5. LEUCOVORIN CALCIUM [Suspect]

REACTIONS (3)
  - Haematemesis [None]
  - Thrombosis [None]
  - Cardiac arrest [None]
